FAERS Safety Report 4788923-5 (Version None)
Quarter: 2005Q4

REPORT INFORMATION
  Report Type: 
  Country: None (occurrence: None)
  Receive Date: 20051004
  Receipt Date: 20050902
  Transmission Date: 20060501
  Serious: Yes (Hospitalization)
  Sender: FDA-Public Use
  Company Number: 6017057

PATIENT
  Age: 59 Year
  Sex: Female

DRUGS (5)
  1. LEVOTHYROX (TABLETS) (LEVOTHYROXINE SODIUM) [Suspect]
     Indication: HYPOTHYROIDISM
     Dosage: ORAL
     Route: 048
     Dates: start: 20040101
  2. MEDIATOR (TABLET) (BENFLUOREX HYDROCHLORIDE) [Suspect]
     Dosage: 1,00 DOSAGE FORMS (1 DOSAGE FORMS, 1 IN 1 D), ORAL
     Route: 048
  3. VASTEN (TABLET) (PRAVASTATIN SODIUM) [Suspect]
     Dosage: 40,000 MG (40 MG, 1 IN 1 D), ORAL
     Route: 048
  4. TEMESTA (1 MG, TABLET) (LORAZEPAM) [Suspect]
     Dosage: 1,00 MG (1 MG, 1 IN 1 D), ORAL
     Route: 048
  5. VASTAREL (1 MG, TABLET) (TRIMETAZIDINE) [Suspect]
     Dosage: 1,00 MG (1 MG, 1 IN 1 D), ORAL
     Route: 048
     Dates: end: 20050802

REACTIONS (4)
  - CEREBRAL VENTRICLE DILATATION [None]
  - LEUKOENCEPHALOPATHY [None]
  - PAPILLOEDEMA [None]
  - VISUAL ACUITY REDUCED [None]
